FAERS Safety Report 5547301-1 (Version None)
Quarter: 2007Q4

REPORT INFORMATION
  Report Type: 
  Country: None (occurrence: None)
  Receive Date: 20071211
  Receipt Date: 20071203
  Transmission Date: 20080405
  Serious: Yes (Hospitalization)
  Sender: FDA-Public Use
  Company Number: FR-PFIZER INC-2007101059

PATIENT
  Age: 70 Year
  Sex: Male

DRUGS (8)
  1. TAHOR [Suspect]
     Dates: start: 20040101, end: 20070921
  2. COAPROVEL [Concomitant]
     Dosage: TEXT:300
  3. CARDENSIEL [Concomitant]
  4. PHYSIOTENS [Concomitant]
     Dosage: TEXT:04
  5. KARDEGIC [Concomitant]
     Dosage: TEXT:75
  6. PRAXILENE [Concomitant]
  7. ALLOPURINOL [Concomitant]
     Dosage: TEXT:300
  8. ZOLPIDEM TARTRATE [Concomitant]

REACTIONS (3)
  - CYTOLYTIC HEPATITIS [None]
  - RENAL FAILURE ACUTE [None]
  - RHABDOMYOLYSIS [None]
